FAERS Safety Report 13048144 (Version 1)
Quarter: 2016Q4

REPORT INFORMATION
  Report Type: Spontaneous
  Country: US (occurrence: US)
  Receive Date: 20161220
  Receipt Date: 20161220
  Transmission Date: 20170207
  Serious: Yes (Other)
  Sender: FDA-Public Use
  Company Number: US-MYLANLABS-2016M1054099

PATIENT

DRUGS (1)
  1. ETHINYLESTRADIOL/NORELGESTROMIN TRANSDERMAL PATCH [Suspect]
     Active Substance: ETHINYL ESTRADIOL\NORELGESTROMIN
     Indication: PRODUCT USED FOR UNKNOWN INDICATION
     Dosage: 150 ?G, QD
     Route: 062

REACTIONS (5)
  - Vaginal haemorrhage [Unknown]
  - Drug ineffective [Unknown]
  - Abortion spontaneous [Recovered/Resolved]
  - Application site rash [Unknown]
  - Application site pruritus [Unknown]
